FAERS Safety Report 4361238-5 (Version None)
Quarter: 2004Q2

REPORT INFORMATION
  Report Type: 
  Country: None (occurrence: None)
  Receive Date: 20040519
  Receipt Date: 20040507
  Transmission Date: 20050107
  Serious: Yes (Hospitalization)
  Sender: FDA-Public Use
  Company Number: 2004-04-0621

PATIENT
  Age: 74 Year
  Sex: Female

DRUGS (8)
  1. NAQUA [Suspect]
     Indication: HYPERTENSION
     Dosage: 0.5 MG DAILY ORAL
     Route: 048
     Dates: start: 20031101, end: 20040223
  2. TENORMIN [Suspect]
     Indication: HYPERTENSION
     Dosage: 25 MG DAILY ORAL
     Route: 048
     Dates: start: 20031101, end: 20040223
  3. BLOPRESS (CANDESARTAN CILEXETIL) [Suspect]
     Indication: HYPERTENSION
     Dosage: 4 MG DAILY ORAL
     Route: 048
     Dates: start: 20031107
  4. NORVASC [Suspect]
     Indication: HYPERTENSION
     Dosage: 2.5 MG DAILY ORAL
     Route: 048
     Dates: start: 20010511, end: 20031106
  5. LANSOPRAZOLE [Concomitant]
  6. MAALOX [Concomitant]
  7. GANATON (ITOPRIDE HCL) [Concomitant]
  8. REBAMIPIDE [Concomitant]

REACTIONS (4)
  - CHRONIC SINUSITIS [None]
  - LYMPHOCYTE STIMULATION TEST POSITIVE [None]
  - PSORIASIS [None]
  - TOXIC SKIN ERUPTION [None]
